FAERS Safety Report 20689913 (Version 1)
Quarter: 2022Q2

REPORT INFORMATION
  Report Type: Spontaneous
  Country: CA (occurrence: CA)
  Receive Date: 20220408
  Receipt Date: 20220408
  Transmission Date: 20220721
  Serious: Yes (Hospitalization, Other)
  Sender: FDA-Public Use
  Company Number: CA-BAUSCH-BL-2022-003982

PATIENT
  Age: 54 Year
  Sex: Female

DRUGS (9)
  1. LITHIUM [Suspect]
     Active Substance: LITHIUM
     Indication: Bipolar I disorder
     Route: 048
  2. LITHIUM [Suspect]
     Active Substance: LITHIUM
     Route: 048
  3. DESMOPRESSIN [Suspect]
     Active Substance: DESMOPRESSIN
     Indication: Product used for unknown indication
     Route: 065
  4. BENZTROPINE [Concomitant]
     Active Substance: BENZTROPINE
     Indication: Bipolar I disorder
     Route: 048
  5. BENZTROPINE [Concomitant]
     Active Substance: BENZTROPINE
     Route: 048
  6. LORAZEPAM [Concomitant]
     Active Substance: LORAZEPAM
     Indication: Bipolar I disorder
     Route: 048
  7. LORAZEPAM [Concomitant]
     Active Substance: LORAZEPAM
     Route: 048
  8. RISPERIDONE [Concomitant]
     Active Substance: RISPERIDONE
     Indication: Bipolar I disorder
     Route: 048
  9. RISPERIDONE [Concomitant]
     Active Substance: RISPERIDONE
     Route: 048

REACTIONS (5)
  - Haemodialysis [Recovered/Resolved]
  - Nephrogenic diabetes insipidus [Recovered/Resolved]
  - Toxicity to various agents [Recovered/Resolved]
  - Acute kidney injury [Recovered/Resolved]
  - Drug ineffective [Recovered/Resolved]
